FAERS Safety Report 8115596-6 (Version None)
Quarter: 2012Q1

REPORT INFORMATION
  Report Type: 
  Country: None (occurrence: None)
  Receive Date: 20120201
  Receipt Date: 20120117
  Transmission Date: 20120608
  Serious: Yes (Death, Hospitalization)
  Sender: FDA-Public Use
  Company Number: UTC-014285

PATIENT
  Age: 53 Year
  Sex: Female
  Weight: 62.7 kg

DRUGS (4)
  1. LETAIRIS [Concomitant]
  2. DIURETICS (DIURETICS) [Concomitant]
  3. ADCIRCA [Concomitant]
  4. REMODULIN [Suspect]
     Indication: HYPERTENSION
     Dosage: 149.76 UG/KG (0.104 UG/KG, 1 IN 1 MIN), INTRAVENOUS
     Route: 042
     Dates: start: 20091104

REACTIONS (3)
  - PNEUMONIA [None]
  - ENTEROCOLITIS VIRAL [None]
  - SEPSIS [None]
